FAERS Safety Report 23069203 (Version 1)
Quarter: 2023Q4

REPORT INFORMATION
  Report Type: Spontaneous
  Country: US (occurrence: None)
  Receive Date: 20231015
  Receipt Date: 20231015
  Transmission Date: 20240109
  Serious: Yes (Disabling)
  Sender: FDA-Public Use
  Company Number: None

PATIENT
  Age: 38 Year
  Sex: Female
  Weight: 69.75 kg

DRUGS (10)
  1. PREGABALIN [Suspect]
     Active Substance: PREGABALIN
     Indication: Fibromyalgia
     Dates: start: 20211206, end: 20220601
  2. PREGABALIN [Suspect]
     Active Substance: PREGABALIN
     Indication: Chronic fatigue syndrome
  3. NALTREXONE LOW DOSE [Concomitant]
  4. VITAMINS [Concomitant]
     Active Substance: VITAMINS
  5. VITAMIN D [Concomitant]
     Active Substance: VITAMIN D NOS
  6. MAGNESIUM [Concomitant]
     Active Substance: MAGNESIUM
  7. MELATONIN LOW DOSE [Concomitant]
  8. CURCUMIN [Concomitant]
     Active Substance: CURCUMIN
  9. IBUPROFEN [Concomitant]
     Active Substance: IBUPROFEN
  10. TYLENOL [Concomitant]
     Active Substance: ACETAMINOPHEN

REACTIONS (5)
  - Dyspnoea [None]
  - Middle insomnia [None]
  - Somnolence [None]
  - Muscle twitching [None]
  - Blepharospasm [None]

NARRATIVE: CASE EVENT DATE: 20211218
